FAERS Safety Report 6163210-1 (Version None)
Quarter: 2009Q2

REPORT INFORMATION
  Report Type: 
  Country: None (occurrence: None)
  Receive Date: 20090422
  Receipt Date: 20090407
  Transmission Date: 20091009
  Serious: Yes (Hospitalization)
  Sender: FDA-Public Use
  Company Number: US-BAYER-200918358NA

PATIENT
  Age: 37 Year
  Sex: Male

DRUGS (2)
  1. CAMPATH [Suspect]
     Indication: MULTIPLE SCLEROSIS
     Dosage: BLINDED DOSE
     Route: 042
     Dates: start: 20090217, end: 20090221
  2. SOLU-MEDROL [Concomitant]
     Dosage: 5 DAYS AT HOME

REACTIONS (15)
  - ASTHENIA [None]
  - BASEDOW'S DISEASE [None]
  - BLOOD PRESSURE SYSTOLIC INCREASED [None]
  - DIZZINESS [None]
  - DYSPNOEA [None]
  - DYSSTASIA [None]
  - FATIGUE [None]
  - HOT FLUSH [None]
  - IDIOPATHIC THROMBOCYTOPENIC PURPURA [None]
  - INFECTION [None]
  - LYMPHOCYTE COUNT DECREASED [None]
  - MUSCLE SPASMS [None]
  - PERIPHERAL COLDNESS [None]
  - PULMONARY EMBOLISM [None]
  - URINARY INCONTINENCE [None]
